FAERS Safety Report 23885438 (Version 2)
Quarter: 2024Q2

REPORT INFORMATION
  Report Type: Report from Study
  Country: US (occurrence: US)
  Receive Date: 20240522
  Receipt Date: 20240527
  Transmission Date: 20240716
  Serious: Yes (Hospitalization, Other)
  Sender: FDA-Public Use
  Company Number: US-ABBVIE-5766741

PATIENT
  Sex: Female

DRUGS (1)
  1. SKYRIZI [Suspect]
     Active Substance: RISANKIZUMAB-RZAA
     Indication: Product used for unknown indication
     Route: 058
     Dates: start: 2023

REACTIONS (12)
  - Shoulder operation [Recovering/Resolving]
  - Rash papular [Unknown]
  - Condition aggravated [Unknown]
  - Spinal stenosis [Recovering/Resolving]
  - Rash papular [Recovered/Resolved]
  - Intensive care [Recovered/Resolved]
  - Pruritus [Not Recovered/Not Resolved]
  - Cyst [Recovering/Resolving]
  - Skin exfoliation [Unknown]
  - Therapeutic response shortened [Unknown]
  - Skin erosion [Unknown]
  - Wound complication [Unknown]

NARRATIVE: CASE EVENT DATE: 20230101
